FAERS Safety Report 11804263 (Version 1)
Quarter: 2015Q4

REPORT INFORMATION
  Report Type: Spontaneous
  Country: AU (occurrence: AU)
  Receive Date: 20151204
  Receipt Date: 20151204
  Transmission Date: 20160305
  Serious: Yes (Other)
  Sender: FDA-Public Use
  Company Number: AU-COL_21418_2015

PATIENT
  Age: 65 Year
  Sex: Female

DRUGS (1)
  1. NEUTRAFLUOR 5000 PLUS TOOTHPASTE (SODIUM FLUORIDE 5 MG/G) [Suspect]
     Active Substance: SODIUM FLUORIDE
     Indication: PRODUCT USED FOR UNKNOWN INDICATION
     Dosage: NI/ONCE/
     Route: 048
     Dates: start: 20151118, end: 20151118

REACTIONS (2)
  - Swollen tongue [None]
  - Anaphylactic reaction [Recovering/Resolving]

NARRATIVE: CASE EVENT DATE: 201511
